FAERS Safety Report 8514349-4 (Version None)
Quarter: 2012Q3

REPORT INFORMATION
  Report Type: 
  Country: None (occurrence: None)
  Receive Date: 20120717
  Receipt Date: 20120710
  Transmission Date: 20120928
  Serious: No
  Sender: FDA-Public Use
  Company Number: JP-JNJFOC-20120403757

PATIENT
  Sex: Female
  Weight: 57 kg

DRUGS (10)
  1. FLUPHENAZINE DECANOATE [Suspect]
     Indication: SCHIZOPHRENIA, DISORGANISED TYPE
  2. BLONANSERIN [Suspect]
     Indication: SCHIZOPHRENIA, DISORGANISED TYPE
     Route: 048
     Dates: start: 20110921, end: 20111122
  3. SEROQUEL [Concomitant]
     Indication: SCHIZOPHRENIA, DISORGANISED TYPE
     Route: 048
  4. PALIPERIDONE [Suspect]
     Route: 048
     Dates: start: 20111123, end: 20111208
  5. PALIPERIDONE [Suspect]
     Route: 048
     Dates: start: 20111209, end: 20111227
  6. FERROUS SULFATE TAB [Concomitant]
     Indication: SCHIZOPHRENIA, DISORGANISED TYPE
     Route: 048
  7. VALPROATE SODIUM [Concomitant]
     Indication: SCHIZOPHRENIA, DISORGANISED TYPE
     Route: 048
  8. PALIPERIDONE [Suspect]
     Indication: SCHIZOPHRENIA, DISORGANISED TYPE
     Route: 048
     Dates: start: 20111228
  9. ARTANE [Concomitant]
     Indication: PROPHYLAXIS
     Route: 048
  10. DIAZEPAM [Concomitant]
     Indication: SCHIZOPHRENIA, DISORGANISED TYPE
     Route: 048

REACTIONS (1)
  - CONSTIPATION [None]
